FAERS Safety Report 25172696 (Version 2)
Quarter: 2025Q2

REPORT INFORMATION
  Report Type: Report from Study
  Country: US (occurrence: US)
  Receive Date: 20250408
  Receipt Date: 20250610
  Transmission Date: 20250717
  Serious: Yes (Other)
  Sender: SUNOVION
  Company Number: US-SMPA-2025SPA003977

PATIENT

DRUGS (1)
  1. ORGOVYX [Suspect]
     Active Substance: RELUGOLIX
     Indication: Prostate cancer
     Dosage: 120 MG, QD
     Route: 048
     Dates: start: 20250121

REACTIONS (11)
  - Transient ischaemic attack [Unknown]
  - Infarction [Unknown]
  - Anger [Recovering/Resolving]
  - Food craving [Unknown]
  - Pain [Unknown]
  - Joint stiffness [Unknown]
  - Hot flush [Unknown]
  - Asthenia [Unknown]
  - Weight increased [Unknown]
  - Arthralgia [Unknown]
  - Incorrect dose administered [Unknown]
